FAERS Safety Report 23964120 (Version 1)
Quarter: 2024Q2

REPORT INFORMATION
  Report Type: Spontaneous
  Country: US (occurrence: None)
  Receive Date: 20240611
  Receipt Date: 20240611
  Transmission Date: 20240716
  Serious: Yes (Other)
  Sender: FDA-Public Use
  Company Number: None

PATIENT
  Age: 43 Year
  Sex: Female

DRUGS (2)
  1. LENALIDOMIDE [Suspect]
     Active Substance: LENALIDOMIDE
     Indication: Plasma cell myeloma
     Dosage: 25MG QD ORAL
     Route: 048
     Dates: start: 20240515
  2. BORTEZOMIB [Suspect]
     Active Substance: BORTEZOMIB

REACTIONS (3)
  - Rhinorrhoea [None]
  - Headache [None]
  - Viral infection [None]

NARRATIVE: CASE EVENT DATE: 20240611
